FAERS Safety Report 17792364 (Version 1)
Quarter: 2020Q2

REPORT INFORMATION
  Report Type: Spontaneous
  Country: US (occurrence: US)
  Receive Date: 20200515
  Receipt Date: 20200515
  Transmission Date: 20200714
  Serious: No
  Sender: FDA-Public Use
  Company Number: US-JUBILANT CADISTA PHARMACEUTICALS-2019JUB00283

PATIENT
  Sex: Female
  Weight: 63.04 kg

DRUGS (10)
  1. MAXALT [Concomitant]
     Active Substance: RIZATRIPTAN BENZOATE
  2. CYCLOBENZAPRINE HYDROCHLORIDE. [Suspect]
     Active Substance: CYCLOBENZAPRINE HYDROCHLORIDE
     Indication: SLEEP DISORDER
  3. PROGESTERONE. [Concomitant]
     Active Substance: PROGESTERONE
     Dosage: UNK, FOR 14 DAYS EVERY 3 MONTHS
  4. PROBIOTIC [Concomitant]
     Active Substance: PROBIOTICS NOS
     Dosage: UNK, 1X/DAY
  5. TIZANIDINE. [Concomitant]
     Active Substance: TIZANIDINE
  6. VIVELLE-DOT [Concomitant]
     Active Substance: ESTRADIOL
  7. CYCLOBENZAPRINE HYDROCHLORIDE. [Suspect]
     Active Substance: CYCLOBENZAPRINE HYDROCHLORIDE
     Indication: MIGRAINE
     Dosage: 5 MG, 1X/DAY
     Route: 048
     Dates: end: 20190501
  8. TOPAMAX [Concomitant]
     Active Substance: TOPIRAMATE
     Dosage: ^SMALL DOSE^
  9. CYCLOBENZAPRINE HYDROCHLORIDE. [Suspect]
     Active Substance: CYCLOBENZAPRINE HYDROCHLORIDE
     Indication: FIBROMYALGIA
     Dosage: 10 MG, 1X/DAY
     Route: 048
     Dates: start: 2018
  10. SYNTHROID [Concomitant]
     Active Substance: LEVOTHYROXINE SODIUM

REACTIONS (6)
  - Reaction to excipient [Recovered/Resolved]
  - Insomnia [Not Recovered/Not Resolved]
  - Product substitution issue [Recovered/Resolved]
  - Drug ineffective [Recovered/Resolved]
  - Fibromyalgia [Recovered/Resolved]
  - Feeling abnormal [Unknown]
